FAERS Safety Report 8253006-9 (Version None)
Quarter: 2012Q2

REPORT INFORMATION
  Report Type: 
  Country: None (occurrence: None)
  Receive Date: 20120402
  Receipt Date: 20120326
  Transmission Date: 20120825
  Serious: Yes (Death, Hospitalization, Other)
  Sender: FDA-Public Use
  Company Number: IT-MERCK-1203ITA00055

PATIENT
  Age: 49 Year
  Sex: Female

DRUGS (7)
  1. DIDANOSINE [Suspect]
     Route: 065
     Dates: start: 20020601
  2. PREDNISONE [Concomitant]
     Indication: THROMBOCYTOPENIA
     Route: 048
  3. CRIXIVAN [Suspect]
     Route: 048
     Dates: start: 20020601
  4. DIDANOSINE [Suspect]
     Indication: HIV INFECTION
     Route: 065
     Dates: start: 20011001, end: 20020501
  5. CRIXIVAN [Suspect]
     Indication: HIV INFECTION
     Route: 048
     Dates: start: 20011001, end: 20020501
  6. LAMIVUDINE [Suspect]
     Indication: HIV INFECTION
     Route: 065
     Dates: start: 20011001, end: 20020501
  7. LAMIVUDINE [Suspect]
     Route: 065
     Dates: start: 20020601

REACTIONS (17)
  - PYREXIA [None]
  - THROMBOCYTOPENIA [None]
  - CONVULSION [None]
  - HEMIPARESIS [None]
  - PUPILS UNEQUAL [None]
  - CEREBELLAR SYNDROME [None]
  - NERVOUS SYSTEM DISORDER [None]
  - DIARRHOEA [None]
  - DEMENTIA [None]
  - HYPOAESTHESIA [None]
  - ISCHAEMIA [None]
  - CENTRAL NERVOUS SYSTEM LESION [None]
  - DECREASED VIBRATORY SENSE [None]
  - ABSCESS [None]
  - COUGH [None]
  - IMMUNE RECONSTITUTION SYNDROME [None]
  - RHODOCOCCUS INFECTION [None]
